FAERS Safety Report 14719592 (Version 1)
Quarter: 2018Q2

REPORT INFORMATION
  Report Type: Spontaneous
  Country: DE (occurrence: DE)
  Receive Date: 20180405
  Receipt Date: 20180405
  Transmission Date: 20180711
  Serious: Yes (Death, Hospitalization, Disabling, Other)
  Sender: FDA-Public Use
  Company Number: DE-TEVA-724754GER

PATIENT
  Age: 65 Year
  Sex: Female
  Weight: 114 kg

DRUGS (22)
  1. EUTHYROX [Concomitant]
     Active Substance: LEVOTHYROXINE SODIUM
     Dosage: 125 MICROGRAM DAILY;
  2. ULTIBRO [Concomitant]
     Active Substance: GLYCOPYRRONIUM\INDACATEROL
  3. LORATADIN 10MG [Concomitant]
     Dosage: 10 MILLIGRAM DAILY;
  4. CELLIDRIN [Concomitant]
     Dosage: 150 MILLIGRAM DAILY;
  5. ABILIFY [Concomitant]
     Active Substance: ARIPIPRAZOLE
     Dosage: 10 MILLIGRAM DAILY;
  6. ABILIFY [Concomitant]
     Active Substance: ARIPIPRAZOLE
     Route: 065
  7. LYRICA [Concomitant]
     Active Substance: PREGABALIN
     Dosage: 450 MILLIGRAM DAILY;
  8. VERAPAMIL HENNING [Concomitant]
     Dosage: 120 MILLIGRAM DAILY;
  9. TEMAZEPAM 10MG [Concomitant]
     Dosage: 10 MILLIGRAM DAILY;
     Route: 065
  10. PANTOPRAZOL 20 MG [Concomitant]
     Active Substance: PANTOPRAZOLE SODIUM
     Dosage: 20 MILLIGRAM DAILY;
  11. INDACATEROL 110 MCG [Concomitant]
     Dosage: 1 GTT DAILY;
  12. BENAZEPRIL [Concomitant]
     Active Substance: BENAZEPRIL HYDROCHLORIDE
     Dosage: 20 MILLIGRAM DAILY;
  13. TORASEMID AL [Concomitant]
     Active Substance: TORSEMIDE
     Dosage: 5 MILLIGRAM DAILY;
  14. PREDNISOLON [Concomitant]
     Active Substance: PREDNISOLONE
     Route: 065
  15. PREGABALIN. [Concomitant]
     Active Substance: PREGABALIN
     Route: 065
  16. RAMIPRIL 2.5 MG [Concomitant]
     Dosage: 5 MILLIGRAM DAILY;
     Route: 065
  17. VENLAFAXINE [Suspect]
     Active Substance: VENLAFAXINE HYDROCHLORIDE
     Dosage: 1 DF IN MORNING EVERYDAY
     Route: 048
  18. METFORMIN BIOMO [Suspect]
     Active Substance: METFORMIN HYDROCHLORIDE
     Indication: DIABETES MELLITUS
     Route: 048
  19. TORASEMID AL [Concomitant]
     Active Substance: TORSEMIDE
     Dosage: 30 MILLIGRAM DAILY;
     Route: 065
  20. LYRICA [Concomitant]
     Active Substance: PREGABALIN
     Route: 065
  21. AZITHROMYCIN ANHYDROUS. [Concomitant]
     Active Substance: AZITHROMYCIN ANHYDROUS
     Indication: BRONCHIECTASIS
     Dosage: 500 MILLIGRAM DAILY;
     Route: 048
  22. VENLAFAXINE [Suspect]
     Active Substance: VENLAFAXINE HYDROCHLORIDE
     Indication: DEPRESSION
     Route: 048

REACTIONS (4)
  - Respiratory failure [Fatal]
  - Interstitial lung disease [Not Recovered/Not Resolved]
  - Condition aggravated [Fatal]
  - Interstitial lung disease [Fatal]

NARRATIVE: CASE EVENT DATE: 2016
